FAERS Safety Report 4311011-9 (Version None)
Quarter: 2004Q1

REPORT INFORMATION
  Report Type: 
  Country: None (occurrence: None)
  Receive Date: 20040302
  Receipt Date: 20040302
  Transmission Date: 20041129
  Serious: Yes (Hospitalization)
  Sender: FDA-Public Use
  Company Number: None

PATIENT
  Age: 55 Year
  Sex: Male
  Weight: 74.8435 kg

DRUGS (2)
  1. ELLENCE [Suspect]
     Indication: LUNG CANCER METASTATIC
     Dosage: 35 MG/M2 Q DAY 1 IV
     Route: 042
     Dates: start: 20031101, end: 20040202
  2. CAMPTOSAR [Suspect]
     Dosage: 200 MG/M2 Q DAY 1 IV
     Route: 042
     Dates: start: 20031101, end: 20040202

REACTIONS (5)
  - ABDOMINAL DISTENSION [None]
  - CONSTIPATION [None]
  - NAUSEA [None]
  - SMALL INTESTINAL OBSTRUCTION [None]
  - VOMITING [None]
